FAERS Safety Report 15263044 (Version 1)
Quarter: 2018Q3

REPORT INFORMATION
  Report Type: Spontaneous
  Country: FR (occurrence: FR)
  Receive Date: 20180810
  Receipt Date: 20180810
  Transmission Date: 20181010
  Serious: Yes (Hospitalization, Other)
  Sender: FDA-Public Use
  Company Number: FR-AUROBINDO-AUR-APL-2018-040581

PATIENT
  Age: 51 Year
  Sex: Male
  Weight: 51 kg

DRUGS (7)
  1. PIPERACILLINE / TAZOBACTAM MYLAN [Suspect]
     Active Substance: PIPERACILLIN SODIUM\TAZOBACTAM SODIUM
     Indication: MEDIASTINITIS
     Dosage: 16 GRAM
     Route: 042
     Dates: start: 20180112, end: 20180123
  2. VANCOMYCINE SANDOZ [Suspect]
     Active Substance: VANCOMYCIN
     Indication: MEDIASTINITIS
     Dosage: 2 GRAM
     Route: 048
     Dates: start: 20180112, end: 20180123
  3. TIENAM [Suspect]
     Active Substance: CILASTATIN SODIUM\IMIPENEM
     Indication: MEDIASTINITIS
     Dosage: 3 GIGABECQUEREL
     Route: 067
     Dates: start: 20180124
  4. FLUCONAZOLE ARROW [Suspect]
     Active Substance: FLUCONAZOLE
     Indication: MEDIASTINITIS
     Dosage: 40 MILLIGRAM
     Route: 048
     Dates: start: 20180124
  5. AMIKACIN SULFATE. [Suspect]
     Active Substance: AMIKACIN SULFATE
     Indication: MEDIASTINITIS
     Dosage: 1500 MILLIGRAM
     Route: 042
     Dates: start: 20180124
  6. ZYVOXID [Suspect]
     Active Substance: LINEZOLID
     Indication: MEDIASTINITIS
     Dosage: 2 DOSAGE FORM
     Route: 048
     Dates: start: 20180124
  7. GENTAMICINE PANPHARMA [Suspect]
     Active Substance: GENTAMICIN
     Indication: MEDIASTINITIS
     Dosage: 210 MILLIGRAM
     Route: 042
     Dates: start: 20180112, end: 20180123

REACTIONS (3)
  - Anaemia [Recovered/Resolved]
  - Thrombocytopenia [Recovered/Resolved]
  - Agranulocytosis [Recovered/Resolved]

NARRATIVE: CASE EVENT DATE: 20180226
